FAERS Safety Report 8764989 (Version 1)
Quarter: 2012Q4

REPORT INFORMATION
  Report Type: 
  Country: NL (occurrence: NL)
  Receive Date: 20120902
  Receipt Date: 20120902
  Transmission Date: 20130627
  Serious: Yes (Other)
  Sender: FDA-Public Use
  Company Number: NL-AMGEN-NLDSP2012008431

PATIENT
  Age: 42 Year
  Sex: Female

DRUGS (8)
  1. ENBREL [Suspect]
     Indication: RHEUMATOID ARTHRITIS
     Dosage: 50 mg, weekly
     Dates: start: 20111201
  2. ENBREL [Suspect]
     Dosage: 50 mg, weekly
     Dates: start: 20111201, end: 201207
  3. ENBREL [Suspect]
     Dosage: 50 mg, weekly
     Dates: start: 201207
  4. BRUFEN                             /00109201/ [Concomitant]
     Dosage: UNK
  5. MTX                                /00113801/ [Concomitant]
     Dosage: UNK
  6. FOLIC ACID [Concomitant]
     Dosage: UNK
  7. PLAQUENIL                          /00072602/ [Concomitant]
     Dosage: UNK
  8. NAPROXEN [Concomitant]
     Dosage: UNK

REACTIONS (3)
  - Osteitis [Recovered/Resolved]
  - Pleural infection [Recovered/Resolved]
  - Osteomyelitis [Recovered/Resolved]
